FAERS Safety Report 22991095 (Version 2)
Quarter: 2023Q4

REPORT INFORMATION
  Report Type: Report from Study
  Country: JP (occurrence: JP)
  Receive Date: 20230927
  Receipt Date: 20231027
  Transmission Date: 20240110
  Serious: Yes (Hospitalization)
  Sender: FDA-Public Use
  Company Number: JP-INSMED, INC.-2023-03607-JP

PATIENT
  Age: 70 Year
  Sex: Male

DRUGS (2)
  1. ARIKAYCE [Suspect]
     Active Substance: AMIKACIN
     Indication: Product used for unknown indication
     Dosage: UNK
     Route: 055
     Dates: end: 20230919
  2. ARIKAYCE [Suspect]
     Active Substance: AMIKACIN
     Dosage: UNK
     Route: 055
     Dates: start: 20230922

REACTIONS (2)
  - Hospitalisation [Unknown]
  - Therapy interrupted [Unknown]
